FAERS Safety Report 7688378-7 (Version None)
Quarter: 2011Q3

REPORT INFORMATION
  Report Type: 
  Country: None (occurrence: None)
  Receive Date: 20110817
  Receipt Date: 20110805
  Transmission Date: 20111222
  Serious: Yes (Other)
  Sender: FDA-Public Use
  Company Number: FR-SANOFI-AVENTIS-2011SA041112

PATIENT
  Age: 39 Year
  Sex: Female
  Weight: 64 kg

DRUGS (3)
  1. MILLIGYNON [Concomitant]
     Indication: CONTRACEPTION
     Route: 048
     Dates: end: 20110201
  2. LANTUS [Suspect]
     Indication: TYPE 1 DIABETES MELLITUS
     Route: 058
     Dates: start: 20030927, end: 20110315
  3. NOVORAPID [Concomitant]
     Indication: TYPE 1 DIABETES MELLITUS
     Route: 058

REACTIONS (2)
  - BREAST CANCER [None]
  - BREAST CANCER FEMALE [None]
